FAERS Safety Report 10154785 (Version 2)
Quarter: 2014Q2

REPORT INFORMATION
  Report Type: Spontaneous
  Country: US (occurrence: US)
  Receive Date: 20140506
  Receipt Date: 20140613
  Transmission Date: 20141212
  Serious: No
  Sender: FDA-Public Use
  Company Number: US-B.I. PHARMACEUTICALS,INC./RIDGEFIELD-2014-BI-18826BP

PATIENT
  Age: 68 Year
  Sex: Female
  Weight: 61.68 kg

DRUGS (3)
  1. SPIRIVA [Suspect]
     Indication: EMPHYSEMA
     Dosage: 18 MCG
     Route: 055
     Dates: start: 200610
  2. SEREVENT DISKUS [Concomitant]
     Indication: DYSPNOEA
     Dosage: (INHALATION SPRAY)
     Route: 055
  3. ALBUTEROL [Concomitant]
     Indication: DYSPNOEA
     Dosage: (INHALATION SPRAY)
     Route: 055

REACTIONS (2)
  - Dry throat [Not Recovered/Not Resolved]
  - Product quality issue [Recovered/Resolved]
